FAERS Safety Report 6152318-2 (Version None)
Quarter: 2009Q2

REPORT INFORMATION
  Report Type: 
  Country: None (occurrence: None)
  Receive Date: 20090413
  Receipt Date: 20070824
  Transmission Date: 20091009
  Serious: Yes (Hospitalization, Other)
  Sender: FDA-Public Use
  Company Number: US-ASTRAZENECA-2005UW14037

PATIENT
  Age: 15197 Day
  Sex: Male
  Weight: 95.3 kg

DRUGS (29)
  1. SEROQUEL [Suspect]
     Indication: MENTAL DISORDER
     Route: 048
     Dates: start: 20001027, end: 20021101
  2. SEROQUEL [Suspect]
     Indication: BIPOLAR DISORDER
     Route: 048
     Dates: start: 20001027, end: 20021101
  3. SEROQUEL [Suspect]
     Indication: DEPRESSION
     Route: 048
     Dates: start: 20001027, end: 20021101
  4. SEROQUEL [Suspect]
     Route: 048
     Dates: start: 20000401, end: 20021201
  5. SEROQUEL [Suspect]
     Route: 048
     Dates: start: 20000401, end: 20021201
  6. SEROQUEL [Suspect]
     Route: 048
     Dates: start: 20000401, end: 20021201
  7. SEROQUEL [Suspect]
     Dosage: 25MG-100MG
     Route: 048
     Dates: start: 20001024
  8. SEROQUEL [Suspect]
     Dosage: 25MG-100MG
     Route: 048
     Dates: start: 20001024
  9. SEROQUEL [Suspect]
     Dosage: 25MG-100MG
     Route: 048
     Dates: start: 20001024
  10. ZYPREXA [Suspect]
     Route: 048
  11. ZYPREXA [Suspect]
     Route: 048
  12. ZYPREXA [Suspect]
     Route: 048
     Dates: start: 20011122
  13. LITHIUM CARBONATE [Concomitant]
     Route: 048
  14. PROPRANOLOL [Concomitant]
     Route: 048
  15. NITROGLYCERIN [Concomitant]
     Dosage: 1/150 GR
     Route: 048
  16. ZOLOFT [Concomitant]
  17. PAXIL [Concomitant]
  18. CELEXA [Concomitant]
  19. DICLOFENAC SODIUM [Concomitant]
  20. XANAX [Concomitant]
  21. DEPAKOTE [Concomitant]
  22. TEMAZEPAM [Concomitant]
  23. COLACE [Concomitant]
  24. LONOX [Concomitant]
  25. METFORMIN [Concomitant]
  26. GLIPIZIDE [Concomitant]
  27. DIVALPROEX SODIUM [Concomitant]
  28. TRAZODONE HCL [Concomitant]
  29. PIROXICAM [Concomitant]

REACTIONS (10)
  - ARTHROPOD BITE [None]
  - BIPOLAR DISORDER [None]
  - BURSITIS [None]
  - CHEST PAIN [None]
  - COSTOCHONDRITIS [None]
  - DIABETES MELLITUS [None]
  - GASTROENTERITIS [None]
  - SUBCUTANEOUS ABSCESS [None]
  - SUICIDAL IDEATION [None]
  - TOOTH ABSCESS [None]
